FAERS Safety Report 8525551-X (Version None)
Quarter: 2012Q3

REPORT INFORMATION
  Report Type: 
  Country: None (occurrence: None)
  Receive Date: 20120720
  Receipt Date: 20120710
  Transmission Date: 20120928
  Serious: Yes (Other)
  Sender: FDA-Public Use
  Company Number: JP-VERTEX PHARMACEUTICALS INC.-AE-2012-006010

PATIENT
  Age: 67 Year
  Sex: Male

DRUGS (16)
  1. TELAVIC (TELAPREVIR) [Suspect]
     Indication: HEPATITIS C
     Route: 048
     Dates: start: 20120418, end: 20120420
  2. DIGOXIN [Concomitant]
     Route: 048
     Dates: end: 20120420
  3. CONIEL [Concomitant]
     Route: 048
     Dates: start: 20120422
  4. BISOPROLOL FUMARATE [Concomitant]
     Route: 048
     Dates: start: 20120422
  5. LOSARTAN POTASSIUM AND HYDROCHLOROTHIAZIDE [Concomitant]
     Route: 048
     Dates: end: 20120420
  6. LOSARTAN POTASSIUM AND HYDROCHLOROTHIAZIDE [Concomitant]
     Route: 048
     Dates: end: 20120420
  7. PEGINTERFERON ALFA-2B [Concomitant]
     Indication: HEPATITIS C
     Route: 058
     Dates: start: 20120418, end: 20120418
  8. WARFARIN SODIUM [Concomitant]
     Route: 048
     Dates: end: 20120420
  9. DIGOXIN [Concomitant]
     Route: 048
     Dates: start: 20120422
  10. RIBAVIRIN [Concomitant]
     Indication: HEPATITIS C
     Route: 048
     Dates: start: 20120418, end: 20120420
  11. CONIEL [Concomitant]
     Route: 048
     Dates: end: 20120420
  12. LOSARTAN POTASSIUM AND HYDROCHLOROTHIAZIDE [Concomitant]
     Route: 048
     Dates: start: 20120422
  13. WARFARIN SODIUM [Concomitant]
     Route: 048
     Dates: start: 20120422
  14. BISOPROLOL FUMARATE [Concomitant]
     Route: 048
     Dates: end: 20120420
  15. LASIX [Concomitant]
     Route: 048
     Dates: start: 20120422
  16. LASIX [Concomitant]
     Route: 048
     Dates: end: 20120420

REACTIONS (5)
  - BLOOD PRESSURE DECREASED [None]
  - HEART RATE DECREASED [None]
  - HAEMOGLOBIN DECREASED [None]
  - RENAL FAILURE ACUTE [None]
  - PYREXIA [None]
